FAERS Safety Report 4332562-7 (Version None)
Quarter: 2004Q1

REPORT INFORMATION
  Report Type: 
  Country: None (occurrence: None)
  Receive Date: 20040330
  Receipt Date: 20040319
  Transmission Date: 20041129
  Serious: Yes (Hospitalization)
  Sender: FDA-Public Use
  Company Number: DE-JNJFOC-20040304567

PATIENT
  Age: 36 Year
  Sex: Male

DRUGS (7)
  1. REMICADE [Suspect]
     Indication: ANKYLOSING SPONDYLITIS
     Dosage: 200 MG, INTRAVENOUS
     Route: 042
     Dates: start: 20030726
  2. METHOTREXATE [Suspect]
     Indication: ANKYLOSING SPONDYLITIS
     Dosage: 15 MG, 1 IN 1 WEEK, ORAL; 10 MG, 1 IN 1 WEEK, ORAL
     Route: 048
     Dates: start: 20010501
  3. METHOTREXATE [Suspect]
     Indication: ANKYLOSING SPONDYLITIS
     Dosage: 15 MG, 1 IN 1 WEEK, ORAL; 10 MG, 1 IN 1 WEEK, ORAL
     Route: 048
     Dates: start: 20030401
  4. BREXIDOL (PIROXICAM BETADEX) [Concomitant]
  5. DEXAMETHASONE [Concomitant]
  6. TRAMADOLOR (TRAMADOL HYDROCHLORIDE) TABLETS [Concomitant]
  7. PREDNISOLONE [Concomitant]

REACTIONS (6)
  - BACK PAIN [None]
  - DRUG INTERACTION [None]
  - MYOCARDITIS [None]
  - PERICARDITIS [None]
  - RESTLESSNESS [None]
  - TACHYCARDIA [None]
